FAERS Safety Report 12450782 (Version 1)
Quarter: 2016Q2

REPORT INFORMATION
  Report Type: Spontaneous
  Country: US (occurrence: US)
  Receive Date: 20160609
  Receipt Date: 20160609
  Transmission Date: 20160815
  Serious: No
  Sender: FDA-Public Use
  Company Number: US-PERRIGO-16US014177

PATIENT
  Age: 44 Year
  Sex: Female
  Weight: 63.49 kg

DRUGS (5)
  1. MIRENA [Concomitant]
     Active Substance: LEVONORGESTREL
     Indication: CONTRACEPTION
     Dosage: UNK
     Route: 050
     Dates: start: 201601
  2. ACYCLOVIR                          /00587301/ [Concomitant]
     Active Substance: ACYCLOVIR
     Indication: PROPHYLAXIS
     Dosage: UNK
     Route: 048
     Dates: start: 2006
  3. PERMETHRIN. [Suspect]
     Active Substance: PERMETHRIN
     Indication: ACARODERMATITIS
     Dosage: THIN LAYER, SINGLE
     Route: 061
     Dates: start: 20160304, end: 20160304
  4. FISH OIL [Concomitant]
     Active Substance: FISH OIL
     Indication: SUPPLEMENTATION THERAPY
     Dosage: UNK
     Route: 048
     Dates: start: 2011
  5. PERMETHRIN. [Suspect]
     Active Substance: PERMETHRIN
     Dosage: THIN LAYER, SINGLE
     Route: 061
     Dates: start: 20160310, end: 20160310

REACTIONS (5)
  - Pruritus [Recovering/Resolving]
  - Drug ineffective [Unknown]
  - Drug administered at inappropriate site [Recovered/Resolved]
  - Dysgeusia [Not Recovered/Not Resolved]
  - Rash maculo-papular [Recovering/Resolving]

NARRATIVE: CASE EVENT DATE: 20160304
